FAERS Safety Report 10042883 (Version 2)
Quarter: 2014Q2

REPORT INFORMATION
  Report Type: Spontaneous
  Country: FR (occurrence: FR)
  Receive Date: 20140328
  Receipt Date: 20140626
  Transmission Date: 20141212
  Serious: No
  Sender: FDA-Public Use
  Company Number: FR-ROCHE-1372890

PATIENT
  Sex: Female

DRUGS (6)
  1. ROACTEMRA [Suspect]
     Indication: RHEUMATOID ARTHRITIS
     Dosage: THERAPY START DATE: 25/FEB/2014
     Route: 041
  2. PROFENID [Suspect]
     Indication: SPINAL PAIN
     Route: 065
  3. PROFENID [Suspect]
     Indication: ARTHRALGIA
  4. SOLUPRED (FRANCE) [Concomitant]
     Route: 065
  5. DIFFU K [Concomitant]
  6. DAFALGAN [Concomitant]

REACTIONS (3)
  - Abdominal pain [Recovered/Resolved]
  - Diarrhoea [Recovered/Resolved]
  - Chills [Recovered/Resolved]
